FAERS Safety Report 6905179-5 (Version None)
Quarter: 2010Q3

REPORT INFORMATION
  Report Type: 
  Country: None (occurrence: None)
  Receive Date: 20100804
  Receipt Date: 20091217
  Transmission Date: 20110219
  Serious: No
  Sender: FDA-Public Use
  Company Number: US-PFIZER INC-2009240652

PATIENT
  Sex: Female
  Weight: 72.6 kg

DRUGS (15)
  1. LYRICA [Suspect]
     Indication: GUILLAIN-BARRE SYNDROME
     Dosage: 450MG/DAY
     Dates: start: 20090224
  2. LYRICA [Suspect]
     Indication: PAIN
  3. MORPHINE HCL ELIXIR [Suspect]
     Dosage: UNK
     Dates: start: 20090101
  4. OXYCONTIN [Concomitant]
     Dates: start: 20090101, end: 20090101
  5. BENADRYL [Concomitant]
     Dosage: UNK
     Route: 048
  6. LEVAQUIN [Concomitant]
     Dosage: UNK
     Route: 048
  7. ATROVENT [Concomitant]
     Dosage: UNK
  8. SALBUTAMOL [Concomitant]
     Dosage: UNK
  9. ZANAFLEX [Concomitant]
     Dosage: 4 MG, UNK
     Route: 048
  10. FRAGMIN [Concomitant]
     Dosage: UNK
  11. NAPROSYN [Concomitant]
     Dosage: UNK
  12. TOBREX [Concomitant]
     Dosage: UNK
  13. ISOPTO TEARS [Concomitant]
     Dosage: UNK
  14. COLACE [Concomitant]
     Dosage: UNK
  15. PEPCID [Concomitant]
     Dosage: UNK

REACTIONS (3)
  - DRY MOUTH [None]
  - MALAISE [None]
  - WEIGHT DECREASED [None]
